FAERS Safety Report 15280110 (Version 1)
Quarter: 2018Q3

REPORT INFORMATION
  Report Type: Spontaneous
  Country: CH (occurrence: CH)
  Receive Date: 20180815
  Receipt Date: 20180815
  Transmission Date: 20181010
  Serious: Yes (Hospitalization)
  Sender: FDA-Public Use
  Company Number: -ASTRAZENECA-2018SF02372

PATIENT
  Age: 60 Year
  Sex: Male
  Weight: 101.6 kg

DRUGS (7)
  1. CHOLIB [Concomitant]
     Active Substance: FENOFIBRATE\SIMVASTATIN
  2. PONSTAN [Concomitant]
     Active Substance: MEFENAMIC ACID
  3. JANUMET [Concomitant]
     Active Substance: METFORMIN HYDROCHLORIDE\SITAGLIPTIN PHOSPHATE
  4. ASPIRIN CARDIO [Concomitant]
     Active Substance: ASPIRIN
  5. LISINOPRIL. [Concomitant]
     Active Substance: LISINOPRIL
  6. FORXIGA [Suspect]
     Active Substance: DAPAGLIFLOZIN
     Indication: TYPE 2 DIABETES MELLITUS
     Route: 048
     Dates: start: 201705, end: 20180510
  7. TOREM [Concomitant]
     Active Substance: TORSEMIDE

REACTIONS (1)
  - Ketoacidosis [Recovered/Resolved]

NARRATIVE: CASE EVENT DATE: 20180510
